FAERS Safety Report 8927978 (Version 2)
Quarter: 2013Q1

REPORT INFORMATION
  Report Type: Spontaneous
  Country: US (occurrence: None)
  Receive Date: 20121120
  Receipt Date: 20130212
  Transmission Date: 20140127
  Serious: Yes (Other)
  Sender: FDA-Public Use
  Company Number: ADR-2012-02094

PATIENT
  Sex: 0

DRUGS (1)
  1. BACLOFEN [Suspect]
     Route: 037

REACTIONS (1)
  - Implant site infection [None]
